FAERS Safety Report 4388928-2 (Version None)
Quarter: 2004Q2

REPORT INFORMATION
  Report Type: 
  Country: None (occurrence: None)
  Receive Date: 20040628
  Receipt Date: 20040609
  Transmission Date: 20050107
  Serious: Yes (Hospitalization)
  Sender: FDA-Public Use
  Company Number: ATO-04-0568

PATIENT
  Age: 68 Year
  Sex: Male

DRUGS (10)
  1. TRISENOX [Suspect]
     Indication: MYELODYSPLASTIC SYNDROME
  2. VITAMIN E [Concomitant]
  3. DILTIAZEM [Concomitant]
  4. PRAVACHOL [Concomitant]
  5. TRICOR [Concomitant]
  6. FLOMAX [Concomitant]
  7. FEOSOL [Concomitant]
  8. VITAMIN B COMPLEX CAP [Concomitant]
  9. MAGNESIUM [Concomitant]
  10. FOLIC ACID [Concomitant]

REACTIONS (5)
  - ARTHRALGIA [None]
  - ASTHENIA [None]
  - BACK PAIN [None]
  - MYALGIA [None]
  - NON-CARDIAC CHEST PAIN [None]
